FAERS Safety Report 4634212-9 (Version None)
Quarter: 2005Q2

REPORT INFORMATION
  Report Type: 
  Country: None (occurrence: None)
  Receive Date: 20050325
  Receipt Date: 20041208
  Transmission Date: 20051028
  Serious: No
  Sender: FDA-Public Use
  Company Number: USA021225205

PATIENT
  Age: 61 Year
  Sex: Female
  Weight: 41 kg

DRUGS (6)
  1. FORTEO [Suspect]
     Indication: BONE DENSITY DECREASED
     Dosage: 20 UG
     Dates: start: 20021218
  2. ATENOLOL [Concomitant]
  3. ASPIRIN [Concomitant]
  4. SEREVENT DISKUS (SALMETEROL XINAFOATE) [Concomitant]
  5. VITAMIN E [Concomitant]
  6. FOSAMAX [Concomitant]

REACTIONS (7)
  - BONE DENSITY DECREASED [None]
  - FATIGUE [None]
  - FEELING ABNORMAL [None]
  - HEADACHE [None]
  - INJECTION SITE HAEMORRHAGE [None]
  - NAUSEA [None]
  - VOMITING [None]
